FAERS Safety Report 8853116 (Version 1)
Quarter: 2012Q4

REPORT INFORMATION
  Report Type: 
  Country: US (occurrence: US)
  Receive Date: 20121022
  Receipt Date: 20121022
  Transmission Date: 20130627
  Serious: Yes (Hospitalization)
  Sender: FDA-Public Use
  Company Number: US-ARROW-2012-17915

PATIENT
  Age: 50 Year
  Sex: Male

DRUGS (2)
  1. VALACYCLOVIR HYDROCHLORIDE [Suspect]
     Indication: HERPES ZOSTER
     Dosage: UNK
     Route: 048
  2. FINGOLIMOD [Suspect]
     Indication: MULTIPLE SCLEROSIS
     Dosage: UNK
     Route: 065
     Dates: start: 2011

REACTIONS (9)
  - Viral vasculitis [Recovering/Resolving]
  - Drug ineffective [Not Recovered/Not Resolved]
  - Herpes zoster [None]
  - Convulsion [None]
  - Coma [None]
  - Brain stem infarction [None]
  - JC virus test positive [None]
  - Renal failure acute [None]
  - Encephalitis viral [None]
